FAERS Safety Report 7256412-4 (Version None)
Quarter: 2011Q1

REPORT INFORMATION
  Report Type: 
  Country: None (occurrence: None)
  Receive Date: 20110129
  Receipt Date: 20100720
  Transmission Date: 20110831
  Serious: No
  Sender: FDA-Public Use
  Company Number: US-ABBOTT-10P-163-0659066-00

PATIENT
  Sex: Male
  Weight: 107.6 kg

DRUGS (2)
  1. BALFALAZIDE [Concomitant]
     Indication: INFLAMMATION
  2. HUMIRA [Suspect]
     Indication: COLITIS ULCERATIVE

REACTIONS (10)
  - CHILLS [None]
  - THROMBOSIS [None]
  - LOWER RESPIRATORY TRACT INFECTION [None]
  - PAIN [None]
  - PYREXIA [None]
  - SKIN ATROPHY [None]
  - COUGH [None]
  - SWELLING [None]
  - WHITE BLOOD CELL COUNT DECREASED [None]
  - CELLULITIS [None]
